FAERS Safety Report 8543138-X (Version None)
Quarter: 2012Q3

REPORT INFORMATION
  Report Type: 
  Country: None (occurrence: None)
  Receive Date: 20120727
  Receipt Date: 20120319
  Transmission Date: 20120928
  Serious: No
  Sender: FDA-Public Use
  Company Number: US-MYLANLABS-2012S1006075

PATIENT
  Sex: Female

DRUGS (1)
  1. LEVOTHYROXINE SODIUM [Suspect]
     Dates: end: 20120301

REACTIONS (5)
  - ANXIETY [None]
  - NERVOUSNESS [None]
  - AGITATION [None]
  - PALPITATIONS [None]
  - NAUSEA [None]
